FAERS Safety Report 18715409 (Version 3)
Quarter: 2021Q1

REPORT INFORMATION
  Report Type: Spontaneous
  Country: US (occurrence: US)
  Receive Date: 20210108
  Receipt Date: 20210211
  Transmission Date: 20210419
  Serious: Yes (Hospitalization, Other)
  Sender: FDA-Public Use
  Company Number: US-UNITED THERAPEUTICS-UNT-2021-000013

PATIENT
  Age: 64 Year
  Sex: Female
  Weight: 68.03 kg

DRUGS (2)
  1. REMODULIN [Suspect]
     Active Substance: TREPROSTINIL
     Dosage: 0.042 ?G/KG, CONTINUING
     Route: 041
  2. REMODULIN [Suspect]
     Active Substance: TREPROSTINIL
     Indication: PULMONARY ARTERIAL HYPERTENSION
     Dosage: UNK, CONTINUING
     Route: 041
     Dates: start: 20200106

REACTIONS (5)
  - Loss of consciousness [Unknown]
  - Hip fracture [Unknown]
  - Pelvic fracture [Unknown]
  - Fall [Recovered/Resolved with Sequelae]
  - Dyspnoea [Unknown]

NARRATIVE: CASE EVENT DATE: 202101
